FAERS Safety Report 6356370-0 (Version None)
Quarter: 2009Q3

REPORT INFORMATION
  Report Type: 
  Country: None (occurrence: None)
  Receive Date: 20090911
  Receipt Date: 20090911
  Transmission Date: 20100115
  Serious: Yes (Death)
  Sender: FDA-Public Use
  Company Number: None

PATIENT
  Age: 77 Year
  Sex: Male
  Weight: 54.2 kg

DRUGS (10)
  1. SUNITINIB 50MG PFIZER [Suspect]
     Indication: RENAL CELL CARCINOMA
     Dosage: 50MG DAILY PO
     Route: 048
     Dates: start: 20090714, end: 20090903
  2. ERLOTINIB 150MG OSI/GENENTECH [Suspect]
     Indication: RENAL CELL CARCINOMA
     Dosage: 150MG DAILY PO
     Route: 048
     Dates: start: 20090714, end: 20090903
  3. ACETAMINOPHEN [Concomitant]
  4. ASPIRIN [Concomitant]
  5. ATENOLOL AND CHLORTHALIDONE [Concomitant]
  6. LIPITOR [Concomitant]
  7. MINOCYCLINE HCL [Concomitant]
  8. OXYCONTIN [Concomitant]
  9. OXYCODONE [Concomitant]
  10. POTASSIUM CHLORIDE [Concomitant]

REACTIONS (6)
  - AORTIC ANEURYSM RUPTURE [None]
  - CONSTIPATION [None]
  - DYSGEUSIA [None]
  - PALMAR-PLANTAR ERYTHRODYSAESTHESIA SYNDROME [None]
  - RASH [None]
  - WEIGHT DECREASED [None]
